FAERS Safety Report 7619218-X (Version None)
Quarter: 2011Q3

REPORT INFORMATION
  Report Type: 
  Country: None (occurrence: None)
  Receive Date: 20110718
  Receipt Date: 20110708
  Transmission Date: 20111222
  Serious: Yes (Disabling)
  Sender: FDA-Public Use
  Company Number: GB-ASTRAZENECA-2011SE39632

PATIENT
  Age: 44 Year
  Sex: Male
  Weight: 76.2 kg

DRUGS (4)
  1. MIRTAZAPINE [Concomitant]
     Route: 048
  2. ZOPICLONE [Concomitant]
     Route: 048
  3. SEROQUEL [Suspect]
     Route: 048
     Dates: start: 20110511
  4. SEROQUEL [Suspect]
     Route: 048
     Dates: end: 20110608

REACTIONS (9)
  - BURNING SENSATION [None]
  - FEELING ABNORMAL [None]
  - FATIGUE [None]
  - AMNESIA [None]
  - MUSCLE TWITCHING [None]
  - GAIT DISTURBANCE [None]
  - DYSPNOEA [None]
  - SYNCOPE [None]
  - COORDINATION ABNORMAL [None]
